FAERS Safety Report 4488552-7 (Version None)
Quarter: 2004Q4

REPORT INFORMATION
  Report Type: 
  Country: None (occurrence: None)
  Receive Date: 20041028
  Receipt Date: 20041028
  Transmission Date: 20050328
  Serious: Yes (Death, Life-Threatening, Hospitalization)
  Sender: FDA-Public Use
  Company Number: None

PATIENT
  Age: 64 Year
  Sex: Male
  Weight: 57.1532 kg

DRUGS (12)
  1. ZIAGEN [Suspect]
     Indication: HIV INFECTION
     Dosage: 300MG, BID, ORAL
     Route: 048
     Dates: start: 20040904, end: 20040908
  2. EPIVIR [Suspect]
     Indication: HIV INFECTION
     Dosage: 300MG, QD, ORAL
     Route: 048
     Dates: start: 20040904, end: 20040908
  3. REYATAZ [Suspect]
     Indication: HIV INFECTION
     Dosage: 300MG, QD, ORAL
     Route: 048
     Dates: start: 20040904, end: 20040908
  4. NORVIR [Suspect]
     Indication: HIV INFECTION
     Dosage: 100MG, QD, ORAL
     Route: 048
     Dates: start: 20040904, end: 20040908
  5. HUMULIN 70/30 [Concomitant]
  6. ZOVIRAX [Concomitant]
  7. TENORMIN [Concomitant]
  8. LOPID [Concomitant]
  9. ZOLOFT [Concomitant]
  10. TYLENOL W/ CODEINE [Concomitant]
  11. IMODIUM [Concomitant]
  12. PLENDIL [Concomitant]

REACTIONS (20)
  - ALANINE AMINOTRANSFERASE INCREASED [None]
  - ARTHRALGIA [None]
  - ASPARTATE AMINOTRANSFERASE INCREASED [None]
  - BLOOD CREATININE INCREASED [None]
  - BLOOD GLUCOSE INCREASED [None]
  - BLOOD PH DECREASED [None]
  - BLOOD POTASSIUM INCREASED [None]
  - BLOOD PRESSURE SYSTOLIC DECREASED [None]
  - BLOOD UREA INCREASED [None]
  - CHEST X-RAY ABNORMAL [None]
  - FATIGUE [None]
  - HYPERSENSITIVITY [None]
  - HYPOTHERMIA [None]
  - NAUSEA [None]
  - OEDEMA PERIPHERAL [None]
  - PCO2 DECREASED [None]
  - PO2 INCREASED [None]
  - RASH MACULO-PAPULAR [None]
  - RESPIRATORY DISTRESS [None]
  - SINUS HEADACHE [None]
